FAERS Safety Report 7602887-8 (Version None)
Quarter: 2011Q2

REPORT INFORMATION
  Report Type: 
  Country: None (occurrence: None)
  Receive Date: 20110630
  Receipt Date: 20110614
  Transmission Date: 20111010
  Serious: Yes (Hospitalization, Other)
  Sender: FDA-Public Use
  Company Number: 2011000070

PATIENT
  Age: 72 Year
  Sex: Male
  Weight: 63 kg

DRUGS (9)
  1. SORAFENIB (SORAFENIB) TABLET [Suspect]
     Indication: HEPATIC NEOPLASM MALIGNANT
     Dosage: 400 MG, UID/QD, ORAL
     Route: 048
     Dates: start: 20101202, end: 20101230
  2. CODEINE SULFATE [Concomitant]
  3. ENTECAVIR (ENTECAVIR) [Concomitant]
  4. IRON (IRON) [Concomitant]
  5. FORTISIP (FORTISIP) [Concomitant]
  6. ERLOTINIB HYDROCHLORIDE [Suspect]
     Indication: HEPATIC NEOPLASM MALIGNANT
     Dosage: 100 MG, UID/QD, ORAL
     Route: 048
     Dates: start: 20101202, end: 20101230
  7. MORPHINE [Concomitant]
  8. LORATADINE [Concomitant]
  9. LOPERAMIDE [Concomitant]

REACTIONS (12)
  - GASTRIC ULCER [None]
  - VOMITING [None]
  - NAUSEA [None]
  - RENAL IMPAIRMENT [None]
  - BLOOD CREATININE INCREASED [None]
  - BLOOD UREA INCREASED [None]
  - HAEMOGLOBIN DECREASED [None]
  - DEHYDRATION [None]
  - FLANK PAIN [None]
  - METASTASES TO BONE [None]
  - CLOSTRIDIUM DIFFICILE COLITIS [None]
  - ABDOMINAL PAIN UPPER [None]
